FAERS Safety Report 7378488-6 (Version None)
Quarter: 2011Q1

REPORT INFORMATION
  Report Type: 
  Country: None (occurrence: None)
  Receive Date: 20110328
  Receipt Date: 20110317
  Transmission Date: 20110831
  Serious: Yes (Other)
  Sender: FDA-Public Use
  Company Number: US-ASTRAZENECA-2011SE15109

PATIENT
  Sex: Female

DRUGS (2)
  1. TRAMADOL [Concomitant]
  2. NEXIUM [Suspect]
     Route: 048

REACTIONS (2)
  - SYNCOPE [None]
  - TREMOR [None]
